FAERS Safety Report 11656605 (Version 1)
Quarter: 2015Q4

REPORT INFORMATION
  Report Type: Spontaneous
  Country: US (occurrence: US)
  Receive Date: 20151023
  Receipt Date: 20151023
  Transmission Date: 20160304
  Serious: No
  Sender: FDA-Public Use
  Company Number: US-BAYER-2015-444861

PATIENT
  Age: 45 Year
  Sex: Female
  Weight: 43.54 kg

DRUGS (2)
  1. MIRALAX [Suspect]
     Active Substance: POLYETHYLENE GLYCOL 3350
     Indication: CONSTIPATION
     Dosage: UNK
  2. MIRALAX [Suspect]
     Active Substance: POLYETHYLENE GLYCOL 3350
     Indication: CONSTIPATION
     Dosage: 2 TBSP UNK
     Dates: start: 20151013

REACTIONS (3)
  - Urticaria [None]
  - Pruritus [None]
  - Product use issue [None]

NARRATIVE: CASE EVENT DATE: 20151013
